FAERS Safety Report 10698230 (Version 1)
Quarter: 2014Q3

REPORT INFORMATION
  Report Type: Spontaneous
  Country: US (occurrence: US)
  Receive Date: 20140911
  Receipt Date: 20140911
  Transmission Date: 20150326
  Serious: Yes (Hospitalization)
  Sender: FDA-Public Use
  Company Number: US-APOTEX-2014AP004513

PATIENT
  Age: 22 Month
  Weight: 17 kg

DRUGS (1)
  1. LISINOPRIL. [Suspect]
     Active Substance: LISINOPRIL
     Indication: ACCIDENTAL EXPOSURE TO PRODUCT BY CHILD
     Dosage: ESTIMATED DOSAGE OF TEN 10MG TABLETS, 5.88MG/KG
     Route: 048

REACTIONS (2)
  - Accidental exposure to product by child [Unknown]
  - Hypotension [Unknown]
